FAERS Safety Report 13120463 (Version 3)
Quarter: 2019Q2

REPORT INFORMATION
  Report Type: Spontaneous
  Country: None (occurrence: US)
  Receive Date: 20170117
  Receipt Date: 20190624
  Transmission Date: 20190711
  Serious: No
  Sender: FDA-Public Use
  Company Number: US-BIOGEN-2017BI00343893

PATIENT
  Sex: Female

DRUGS (2)
  1. TECFIDERA [Suspect]
     Active Substance: DIMETHYL FUMARATE
     Indication: MULTIPLE SCLEROSIS
     Dosage: TOOK FOR 7 DAYS
     Route: 065
     Dates: start: 20190605
  2. TECFIDERA [Suspect]
     Active Substance: DIMETHYL FUMARATE
     Dosage: STARTED ON DAY 8
     Route: 065

REACTIONS (3)
  - Aphasia [Not Recovered/Not Resolved]
  - Somnolence [Unknown]
  - Visual impairment [Not Recovered/Not Resolved]
